FAERS Safety Report 9650356 (Version 1)
Quarter: 2013Q4

REPORT INFORMATION
  Report Type: Spontaneous
  Country: US (occurrence: US)
  Receive Date: 20131028
  Receipt Date: 20131028
  Transmission Date: 20140711
  Serious: No
  Sender: FDA-Public Use
  Company Number: US-PURDUE-USA-2013-0100444

PATIENT
  Sex: Female

DRUGS (3)
  1. OXYCONTIN (NDA 22-272) [Suspect]
     Indication: PAIN
     Dosage: 80 MG, BID
     Route: 048
  2. OXYCODONE HCL IR CAPSULES [Suspect]
     Indication: PAIN
     Route: 048
  3. LYRICA [Suspect]
     Indication: PAIN
     Route: 048

REACTIONS (2)
  - Nerve compression [Unknown]
  - Immune system disorder [Unknown]
